FAERS Safety Report 23581899 (Version 6)
Quarter: 2024Q3

REPORT INFORMATION
  Report Type: Spontaneous
  Country: US (occurrence: US)
  Receive Date: 20240229
  Receipt Date: 20240808
  Transmission Date: 20241017
  Serious: Yes (Hospitalization, Other)
  Sender: SANDOZ
  Company Number: US-SANDOZ-SDZ2024US019743

PATIENT
  Age: 25 Year
  Sex: Female
  Weight: 63.9 kg

DRUGS (7)
  1. CEFIXIME [Suspect]
     Active Substance: CEFIXIME
     Indication: Urinary tract infection
     Dosage: 400 MG, QD
     Route: 048
     Dates: start: 20231128, end: 20231202
  2. CEFIXIME [Suspect]
     Active Substance: CEFIXIME
     Dosage: 400 MG, QD
     Route: 048
  3. CEFIXIME [Suspect]
     Active Substance: CEFIXIME
     Indication: Crohn^s disease
     Dosage: 400 MG, BID
     Route: 048
     Dates: start: 20231128, end: 20231202
  4. CEFIXIME [Suspect]
     Active Substance: CEFIXIME
     Dosage: 400 MG, BID
     Route: 048
     Dates: start: 20240405
  5. AMITRIPTYLINE HYDROCHLORIDE [Concomitant]
     Active Substance: AMITRIPTYLINE HYDROCHLORIDE
     Indication: Migraine
     Dosage: UNK
     Route: 065
     Dates: start: 20231103
  6. CYANOCOBALAMIN [Concomitant]
     Active Substance: CYANOCOBALAMIN
     Indication: Vitamin B12 deficiency
     Dosage: UNK
     Route: 065
     Dates: start: 20230615
  7. DIENOGEST\ETHINYL ESTRADIOL [Concomitant]
     Active Substance: DIENOGEST\ETHINYL ESTRADIOL
     Indication: Contraception
     Dosage: UNK
     Route: 065
     Dates: start: 20231103

REACTIONS (2)
  - Clostridium difficile infection [Recovered/Resolved]
  - Condition aggravated [Recovered/Resolved]

NARRATIVE: CASE EVENT DATE: 20240205
